FAERS Safety Report 17817046 (Version 1)
Quarter: 2020Q2

REPORT INFORMATION
  Report Type: Spontaneous
  Country: CA (occurrence: CA)
  Receive Date: 20200522
  Receipt Date: 20200522
  Transmission Date: 20200714
  Serious: Yes (Life-Threatening, Hospitalization, Other)
  Sender: FDA-Public Use
  Company Number: CA-SA-2020SA129939

PATIENT
  Age: 68 Year
  Sex: Female
  Weight: 77 kg

DRUGS (17)
  1. OMEGA 3 SELECT [Concomitant]
     Active Substance: FISH OIL
  2. ZANTAC [Concomitant]
     Active Substance: RANITIDINE HYDROCHLORIDE
  3. METFORMIN [Concomitant]
     Active Substance: METFORMIN HYDROCHLORIDE
  4. PARIET [Concomitant]
     Active Substance: RABEPRAZOLE SODIUM
  5. CIPRALEX [Concomitant]
     Active Substance: ESCITALOPRAM OXALATE
  6. DOCETAXEL. [Suspect]
     Active Substance: DOCETAXEL
     Indication: BREAST CANCER FEMALE
     Dosage: 135 MG
     Route: 042
  7. ADALAT CC [Concomitant]
     Active Substance: NIFEDIPINE
  8. ATACAND [Concomitant]
     Active Substance: CANDESARTAN CILEXETIL
  9. EFFEXOR [Concomitant]
     Active Substance: VENLAFAXINE HYDROCHLORIDE
  10. TRASTUZUMAB. [Suspect]
     Active Substance: TRASTUZUMAB
     Indication: BREAST CANCER FEMALE
     Dosage: 620 MG
     Route: 042
  11. VITAMIN D [VITAMIN D NOS] [Concomitant]
     Active Substance: VITAMIN D NOS
  12. CARBOPLATIN. [Suspect]
     Active Substance: CARBOPLATIN
     Indication: BREAST CANCER FEMALE
     Dosage: 620 MG
     Route: 042
  13. MINOCIN [Concomitant]
     Active Substance: MINOCYCLINE HYDROCHLORIDE
  14. ASPIRIN [ACETYLSALICYLIC ACID] [Concomitant]
     Active Substance: ASPIRIN
  15. ATORVASTATIN [Concomitant]
     Active Substance: ATORVASTATIN
  16. CLONAZEPAM. [Concomitant]
     Active Substance: CLONAZEPAM
  17. VITAMIN B12 [VITAMIN B12 NOS] [Concomitant]
     Active Substance: CYANOCOBALAMIN

REACTIONS (6)
  - Dyspnoea [Recovering/Resolving]
  - Pyrexia [Recovering/Resolving]
  - Acute respiratory distress syndrome [Recovering/Resolving]
  - Respiratory distress [Recovering/Resolving]
  - Pneumonia [Recovering/Resolving]
  - Barotrauma [Recovering/Resolving]
